APPROVED DRUG PRODUCT: MORPHINE SULFATE
Active Ingredient: MORPHINE SULFATE
Strength: 30MG
Dosage Form/Route: TABLET;ORAL
Application: A215584 | Product #002
Applicant: INGENUS PHARMACEUTICALS NJ LLC
Approved: Feb 7, 2022 | RLD: No | RS: No | Type: DISCN